FAERS Safety Report 18685944 (Version 1)
Quarter: 2020Q4

REPORT INFORMATION
  Report Type: Spontaneous
  Country: FR (occurrence: FR)
  Receive Date: 20201231
  Receipt Date: 20201231
  Transmission Date: 20210114
  Serious: Yes (Hospitalization, Other)
  Sender: FDA-Public Use
  Company Number: FR-AUROBINDO-AUR-APL-2020-063678

PATIENT
  Age: 16 Year
  Sex: Male
  Weight: 54 kg

DRUGS (2)
  1. SERTRALINE [Suspect]
     Active Substance: SERTRALINE HYDROCHLORIDE
     Indication: PRODUCT USED FOR UNKNOWN INDICATION
     Dosage: 14 DOSAGE FORM
     Route: 048
     Dates: start: 20201213, end: 20201213
  2. TERCIAN [Suspect]
     Active Substance: CYAMEMAZINE
     Indication: PRODUCT USED FOR UNKNOWN INDICATION
     Dosage: 87 DOSAGE FORM
     Route: 048
     Dates: start: 20201213, end: 20201213

REACTIONS (2)
  - Somnolence [Recovered/Resolved]
  - Hypoventilation [Recovered/Resolved]

NARRATIVE: CASE EVENT DATE: 20201213
